FAERS Safety Report 6527531-2 (Version None)
Quarter: 2010Q1

REPORT INFORMATION
  Report Type: 
  Country: None (occurrence: None)
  Receive Date: 20100104
  Receipt Date: 20100104
  Transmission Date: 20100710
  Serious: Yes (Disabling)
  Sender: FDA-Public Use
  Company Number: None

PATIENT
  Age: 13 Year
  Sex: Female
  Weight: 40.8237 kg

DRUGS (2)
  1. SERTRALINE HCL [Suspect]
     Indication: DEPRESSION
     Dosage: 37.5 NG QAN PO
     Route: 048
  2. ZOLOFT [Suspect]

REACTIONS (4)
  - AGGRESSION [None]
  - ANGER [None]
  - CONDITION AGGRAVATED [None]
  - PRODUCT SUBSTITUTION ISSUE [None]
